FAERS Safety Report 18501240 (Version 1)
Quarter: 2020Q4

REPORT INFORMATION
  Report Type: Spontaneous
  Country: US (occurrence: US)
  Receive Date: 20201113
  Receipt Date: 20201113
  Transmission Date: 20210114
  Serious: Yes (Hospitalization)
  Sender: FDA-Public Use
  Company Number: US-PFIZER INC-2020443219

PATIENT
  Age: 35 Year
  Sex: Female

DRUGS (6)
  1. TUBOCURARINE. [Concomitant]
     Active Substance: TUBOCURARINE
     Dosage: 3 MG
  2. SUCCINYLCHOLINE CHLORIDE. [Concomitant]
     Active Substance: SUCCINYLCHOLINE CHLORIDE
     Dosage: 100 MG
     Route: 042
  3. THIAMYLAL [Concomitant]
     Active Substance: THIAMYLAL
     Indication: INDUCTION OF ANAESTHESIA
     Dosage: 300 MG
     Route: 042
  4. ISOFLURANE. [Interacting]
     Active Substance: ISOFLURANE
     Indication: MAINTENANCE OF ANAESTHESIA
     Dosage: UNK, RANGING FROM 0-3.5% INSPIRED CONCENTRATION IN OXYGEN
  5. DROPERIDOL. [Suspect]
     Active Substance: DROPERIDOL
     Indication: PROPHYLAXIS OF NAUSEA AND VOMITING
     Dosage: 0.65 MG (LOW DOSE)
  6. FENTANYL. [Interacting]
     Active Substance: FENTANYL
     Indication: PAIN
     Dosage: 0.05 MG
     Route: 042

REACTIONS (3)
  - Dystonia [Recovered/Resolved]
  - Drug interaction [Recovered/Resolved]
  - Akathisia [Recovered/Resolved]
